FAERS Safety Report 7517393-9 (Version None)
Quarter: 2011Q2

REPORT INFORMATION
  Report Type: 
  Country: None (occurrence: None)
  Receive Date: 20110601
  Receipt Date: 20110523
  Transmission Date: 20111010
  Serious: Yes (Hospitalization, Other)
  Sender: FDA-Public Use
  Company Number: GB-BAXTER-2011BH017702

PATIENT
  Age: 53 Year
  Sex: Female

DRUGS (3)
  1. CYCLOPHOSPHAMIDE [Suspect]
     Indication: LUPUS NEPHRITIS
     Route: 042
  2. MESNA [Concomitant]
     Indication: PROPHYLAXIS
     Route: 065
  3. DOMPERIDONE [Concomitant]
     Indication: PROPHYLAXIS
     Route: 065

REACTIONS (2)
  - GRAND MAL CONVULSION [None]
  - WATER INTOXICATION [None]
